FAERS Safety Report 6793366-9 (Version None)
Quarter: 2010Q2

REPORT INFORMATION
  Report Type: 
  Country: None (occurrence: None)
  Receive Date: 20100624
  Receipt Date: 20091230
  Transmission Date: 20101027
  Serious: Yes (Death, Other)
  Sender: FDA-Public Use
  Company Number: US-MYLANLABS-2010S1000021

PATIENT
  Age: 71 Year
  Sex: Male

DRUGS (3)
  1. CLOZAPINE [Suspect]
     Indication: DEPRESSION
     Route: 048
  2. SCOPOLAMINE [Concomitant]
     Route: 062
  3. HYOSCYAMINE [Concomitant]

REACTIONS (1)
  - DEATH [None]
